FAERS Safety Report 14049111 (Version 1)
Quarter: 2017Q4

REPORT INFORMATION
  Report Type: Spontaneous
  Country: US (occurrence: US)
  Receive Date: 20171005
  Receipt Date: 20171005
  Transmission Date: 20180321
  Serious: Yes (Hospitalization)
  Sender: FDA-Public Use
  Company Number: US-MYLANLABS-2017M1061897

PATIENT
  Age: 63 Year
  Sex: Female

DRUGS (1)
  1. SODIUM TETRADECYL SULFATE [Suspect]
     Active Substance: SODIUM TETRADECYL SULFATE
     Indication: VARICOSE VEIN
     Dosage: 1.5 ML OF 1% SODIUM TETRADECYL SULFATE
     Route: 042

REACTIONS (1)
  - Injection site ischaemia [Recovered/Resolved]
